FAERS Safety Report 8245352-X (Version None)
Quarter: 2012Q1

REPORT INFORMATION
  Report Type: 
  Country: None (occurrence: None)
  Receive Date: 20120329
  Receipt Date: 20120321
  Transmission Date: 20120608
  Serious: Yes (Hospitalization)
  Sender: FDA-Public Use
  Company Number: ES-ELI_LILLY_AND_COMPANY-ES201203006422

PATIENT
  Sex: Female
  Weight: 79 kg

DRUGS (10)
  1. OMEPRAZOLE [Concomitant]
     Indication: GASTRIC DISORDER
     Dosage: 1 DF, QD
     Route: 048
  2. FORTEO [Suspect]
     Indication: OSTEOPOROSIS
     Dosage: 20 UG, QD
     Route: 058
     Dates: start: 20111122
  3. VENLAFAXINE HCL [Concomitant]
     Indication: DEPRESSION
     Dosage: 1 DF, BID
     Route: 048
  4. ACFOL [Concomitant]
     Indication: OSTEOARTHRITIS
     Dosage: UNK, FRIDAY
     Route: 048
  5. ENBREL [Concomitant]
     Indication: OSTEOARTHRITIS
     Dosage: UNK, WEEKLY (1/W)
     Route: 058
  6. ENALAPRIL [Concomitant]
     Indication: HYPERTENSION
     Dosage: 1 DF, QD
     Route: 048
  7. METILPREDNISOLONE [Concomitant]
     Indication: ANTIINFLAMMATORY THERAPY
     Dosage: UNK, PRN
     Route: 048
  8. LORAZEPAM [Concomitant]
     Indication: INSOMNIA
     Dosage: 1 DF, QD
     Route: 048
  9. METHOTREXATE SODIUM [Concomitant]
     Indication: OSTEOARTHRITIS
     Dosage: 5 UNITS ON THURSDAY
     Route: 058
  10. HYDROCHLOROTHIAZIDE [Concomitant]
     Indication: PERIPHERAL VASCULAR DISORDER
     Dosage: 1 DF, QD
     Route: 048

REACTIONS (5)
  - PATELLA FRACTURE [None]
  - DRUG INEFFECTIVE [None]
  - PELVIC FRACTURE [None]
  - BACK PAIN [None]
  - WRIST SURGERY [None]
